FAERS Safety Report 4802231-5 (Version None)
Quarter: 2005Q4

REPORT INFORMATION
  Report Type: 
  Country: None (occurrence: None)
  Receive Date: 20051017
  Receipt Date: 20051017
  Transmission Date: 20060501
  Serious: Yes (Hospitalization)
  Sender: FDA-Public Use
  Company Number: None

PATIENT
  Age: 47 Year
  Sex: Male

DRUGS (20)
  1. ETANERCEPT [Suspect]
     Dosage: 25 MG SQ TWICE WEEKLY
     Route: 058
     Dates: start: 20040721, end: 20050729
  2. QUETIAPINE FUMARATE [Suspect]
     Dosage: 200MG PO QHS
     Route: 048
     Dates: start: 20030916, end: 20051014
  3. TEMAZEPAM [Concomitant]
  4. ETERCEPT [Concomitant]
  5. OXYBUTYNIN [Concomitant]
  6. DIVALPROEX SODIUM [Concomitant]
  7. CALCIPOTRIENE OINTMENT [Concomitant]
  8. CLOBETASOL PROINATE CREAM [Concomitant]
  9. FLUOCINOLONE TOPICAL SOLUTION [Concomitant]
  10. HYDROCORTISONE [Concomitant]
  11. KETOCONAZOLE SHAMPOO [Concomitant]
  12. FOLIC ACID [Concomitant]
  13. SIMVASTATIN [Concomitant]
  14. TERAZOSIN HCL [Concomitant]
  15. HYDROXYZINE PAMOATE [Concomitant]
  16. QUITAPINE FUMARATE [Concomitant]
  17. CLORPRENALINE MALEATE [Concomitant]
  18. METHOTREXATE [Concomitant]
  19. SILDENALFIL CITRATE [Concomitant]
  20. DESONIDE 0.5 TOPICAL CREAM [Concomitant]

REACTIONS (2)
  - BLOOD GLUCOSE INCREASED [None]
  - DIABETES MELLITUS [None]
